FAERS Safety Report 6681889-2 (Version None)
Quarter: 2010Q2

REPORT INFORMATION
  Report Type: 
  Country: None (occurrence: None)
  Receive Date: 20100412
  Receipt Date: 20100401
  Transmission Date: 20101027
  Serious: Yes (Other)
  Sender: FDA-Public Use
  Company Number: 2010US001165

PATIENT
  Age: 8 Year
  Sex: Male

DRUGS (6)
  1. AMBISOME [Suspect]
     Indication: ANTIFUNGAL PROPHYLAXIS
     Dosage: 3 MG/KG, UID/QD
  2. AMBISOME [Suspect]
     Indication: EVIDENCE BASED TREATMENT
     Dosage: 3 MG/KG, UID/QD
  3. CEFTAZIDIME [Concomitant]
  4. TEICOPLANIN (TEICOPLANIN) [Concomitant]
  5. AMIKACIN [Concomitant]
  6. METRONIDAZOLE [Concomitant]

REACTIONS (9)
  - ACUTE GRAFT VERSUS HOST DISEASE IN INTESTINE [None]
  - ACUTE GRAFT VERSUS HOST DISEASE IN SKIN [None]
  - DEVICE RELATED INFECTION [None]
  - FUSARIUM INFECTION [None]
  - PURULENCE [None]
  - RASH PAPULAR [None]
  - RESPIRATORY TRACT INFECTION FUNGAL [None]
  - SKIN NECROSIS [None]
  - STEM CELL TRANSPLANT [None]
